FAERS Safety Report 15571551 (Version 1)
Quarter: 2020Q3

REPORT INFORMATION
  Report Type: Report from Study
  Country: US (occurrence: US)
  Receive Date: 20181031
  Receipt Date: 20181031
  Transmission Date: 20201105
  Serious: Yes (Hospitalization)
  Sender: FDA-Public Use
  Company Number: US-ASTRAZENECA-2018SF39860

PATIENT
  Age: 73 Year
  Sex: Female
  Weight: 52 kg

DRUGS (10)
  1. SYNTHROID [Concomitant]
     Active Substance: LEVOTHYROXINE SODIUM
     Route: 048
  2. NEXIUM [Concomitant]
     Active Substance: ESOMEPRAZOLE MAGNESIUM
     Dosage: DAILY
     Route: 048
  3. COMPAZINE [Concomitant]
     Active Substance: PROCHLORPERAZINE MALEATE
     Dosage: AS REQUIRED
     Route: 048
  4. FOLIC ACID. [Concomitant]
     Active Substance: FOLIC ACID
     Route: 048
  5. LYRICA [Concomitant]
     Active Substance: PREGABALIN
     Route: 065
  6. OLAPARIB. [Suspect]
     Active Substance: OLAPARIB
     Indication: OVARIAN CANCER
     Route: 048
     Dates: start: 20180731, end: 20181021
  7. MEDI4736 [Suspect]
     Active Substance: DURVALUMAB
     Indication: OVARIAN CANCER
     Route: 042
     Dates: start: 20180731, end: 20180924
  8. CEDIRANIB. [Suspect]
     Active Substance: CEDIRANIB
     Indication: OVARIAN CANCER
     Route: 048
     Dates: start: 20180731, end: 20181019
  9. POTASSIUM CHLORIDE. [Concomitant]
     Active Substance: POTASSIUM CHLORIDE
     Route: 048
  10. ATORVASTATIN [Concomitant]
     Active Substance: ATORVASTATIN
     Route: 048

REACTIONS (5)
  - Weight decreased [Unknown]
  - Dehydration [Unknown]
  - Nausea [Unknown]
  - Dyspnoea [Unknown]
  - Vomiting [Unknown]

NARRATIVE: CASE EVENT DATE: 20181022
